FAERS Safety Report 6006852-6 (Version None)
Quarter: 2008Q4

REPORT INFORMATION
  Report Type: 
  Country: None (occurrence: None)
  Receive Date: 20081217
  Receipt Date: 20071106
  Transmission Date: 20090506
  Serious: No
  Sender: FDA-Public Use
  Company Number: US-ASTRAZENECA-2007UW25779

PATIENT
  Age: 69 Year
  Sex: Female
  Weight: 99.8 kg

DRUGS (12)
  1. CRESTOR [Suspect]
     Indication: BLOOD CHOLESTEROL
     Route: 048
     Dates: start: 20071101
  2. GLUCOVANCE [Concomitant]
  3. AVAPRO [Concomitant]
  4. ZETIA [Concomitant]
  5. SYNTHROID [Concomitant]
  6. ULTRACET [Concomitant]
  7. NAPROSYN [Concomitant]
  8. TOPROL-XL [Concomitant]
  9. MULTI-VITAMIN [Concomitant]
  10. VITAMIN B COMPLEX CAP [Concomitant]
  11. ASCORBIC ACID [Concomitant]
  12. ASPIRIN [Concomitant]

REACTIONS (1)
  - SOMNOLENCE [None]
